FAERS Safety Report 6552529-8 (Version None)
Quarter: 2010Q1

REPORT INFORMATION
  Report Type: 
  Country: None (occurrence: None)
  Receive Date: 20100121
  Receipt Date: 20100119
  Transmission Date: 20100710
  Serious: Yes (Other)
  Sender: FDA-Public Use
  Company Number: 1000011027

PATIENT
  Age: 71 Year
  Sex: Male
  Weight: 154.223 kg

DRUGS (13)
  1. SAVELLA [Suspect]
     Indication: FIBROMYALGIA
     Dosage: 25 MG (12.5 MG, 2 IN 1 D), ORAL
     Route: 048
     Dates: start: 20091203, end: 20091209
  2. HUMULIN 70/30 (INJECTION) [Concomitant]
  3. FLOMAX [Concomitant]
  4. LIPITOR [Concomitant]
  5. METOPROLOL TARTRATE [Concomitant]
  6. LOTENSIN [Concomitant]
  7. PREVACID [Concomitant]
  8. ASPIRIN [Concomitant]
  9. AMBIEN [Concomitant]
  10. OXYCODONE HCL [Concomitant]
  11. FISH OIL [Concomitant]
  12. VITAMIN D [Concomitant]
  13. VITAMIN B-12 [Concomitant]

REACTIONS (1)
  - BLOOD GLUCOSE INCREASED [None]
